FAERS Safety Report 8006292-4 (Version None)
Quarter: 2011Q4

REPORT INFORMATION
  Report Type: 
  Country: None (occurrence: None)
  Receive Date: 20111226
  Receipt Date: 20111215
  Transmission Date: 20120403
  Serious: Yes (Other)
  Sender: FDA-Public Use
  Company Number: US-BAYER-2011-121057

PATIENT
  Sex: Female

DRUGS (1)
  1. BEYAZ [Suspect]
     Indication: CONTRACEPTION
     Dosage: UNK
     Dates: start: 20110601, end: 20110801

REACTIONS (3)
  - PREGNANCY ON ORAL CONTRACEPTIVE [None]
  - ABORTION THREATENED [None]
  - ANTEPARTUM HAEMORRHAGE [None]
